FAERS Safety Report 25875510 (Version 1)
Quarter: 2025Q4

REPORT INFORMATION
  Report Type: Spontaneous
  Country: US (occurrence: US)
  Receive Date: 20251003
  Receipt Date: 20251003
  Transmission Date: 20260118
  Serious: No
  Sender: NOVARTIS
  Company Number: US-002147023-NVSC2025US153602

PATIENT
  Sex: Female

DRUGS (1)
  1. VANRAFIA [Suspect]
     Active Substance: ATRASENTAN HYDROCHLORIDE
     Indication: Haematuria
     Dosage: 0.75 MG, QD
     Route: 048
     Dates: start: 20250904

REACTIONS (5)
  - Swelling [Unknown]
  - Pain in extremity [Unknown]
  - Fluid retention [Unknown]
  - Headache [Unknown]
  - Migraine [Unknown]
